FAERS Safety Report 5452973-6 (Version None)
Quarter: 2007Q3

REPORT INFORMATION
  Report Type: 
  Country: None (occurrence: None)
  Receive Date: 20070914
  Receipt Date: 20070910
  Transmission Date: 20080115
  Serious: Yes (Hospitalization, Other)
  Sender: FDA-Public Use
  Company Number: US-PFIZER INC-2007005972

PATIENT
  Sex: Female
  Weight: 79.4 kg

DRUGS (4)
  1. BEXTRA [Suspect]
     Indication: ARTHRITIS
     Route: 048
  2. VIOXX [Suspect]
     Indication: ARTHRITIS
     Route: 048
     Dates: start: 20021121, end: 20040930
  3. PROPOXYPHENE HYDROCHLORIDE [Concomitant]
     Dates: start: 19990316, end: 20060215
  4. TORSEMIDE [Concomitant]
     Dates: start: 20041112, end: 20060119

REACTIONS (1)
  - CEREBROVASCULAR ACCIDENT [None]
